FAERS Safety Report 11617761 (Version 1)
Quarter: 2015Q4

REPORT INFORMATION
  Report Type: Spontaneous
  Country: FR (occurrence: FR)
  Receive Date: 20151009
  Receipt Date: 20151009
  Transmission Date: 20160304
  Serious: Yes (Hospitalization)
  Sender: FDA-Public Use
  Company Number: FR-009507513-1510FRA004864

PATIENT
  Age: 69 Year
  Sex: Female

DRUGS (16)
  1. APROVEL [Suspect]
     Active Substance: IRBESARTAN
     Indication: HYPERTENSION
     Dosage: 1 DF, QD
     Route: 048
     Dates: end: 20150722
  2. CALCIPARINE [Concomitant]
     Active Substance: HEPARIN CALCIUM
  3. DAFALGAN [Concomitant]
     Active Substance: ACETAMINOPHEN
  4. ESIDREX [Suspect]
     Active Substance: HYDROCHLOROTHIAZIDE
     Indication: HYPERTENSION
     Dosage: 1 DF, QD
     Route: 048
     Dates: end: 20150722
  5. LASILIX [Suspect]
     Active Substance: FUROSEMIDE
     Indication: HYPERTENSION
     Dosage: 1 DF, QD
     Route: 048
     Dates: end: 20150722
  6. CONTRAMAL [Concomitant]
     Active Substance: TRAMADOL HYDROCHLORIDE
  7. CITALOPRAM [Concomitant]
     Active Substance: CITALOPRAM HYDROBROMIDE
  8. KARDEGIC [Concomitant]
     Active Substance: ASPIRIN LYSINE
  9. EUPANTOL [Concomitant]
     Active Substance: PANTOPRAZOLE SODIUM
  10. TOPALGIC (SUPROFEN) [Concomitant]
     Active Substance: SUPROFEN
  11. DIFFU-K [Suspect]
     Active Substance: POTASSIUM CHLORIDE
     Indication: HYPERTENSION
     Dosage: 6 DF, QD
     Route: 048
     Dates: end: 20150722
  12. STILNOX [Concomitant]
     Active Substance: ZOLPIDEM TARTRATE
  13. JANUMET [Suspect]
     Active Substance: METFORMIN HYDROCHLORIDE\SITAGLIPTIN PHOSPHATE
     Indication: DIABETES MELLITUS
     Dosage: 2 DF, QD
     Route: 048
     Dates: end: 20150722
  14. DIFFU-K [Suspect]
     Active Substance: POTASSIUM CHLORIDE
     Dosage: 3 UNK, QD
     Route: 048
     Dates: start: 20150727
  15. METOPROLOL [Concomitant]
     Active Substance: METOPROLOL
  16. TAHOR [Concomitant]
     Active Substance: ATORVASTATIN CALCIUM

REACTIONS (3)
  - Acute kidney injury [Recovered/Resolved]
  - Hyperkalaemia [Recovered/Resolved]
  - Hyponatraemia [Recovered/Resolved]

NARRATIVE: CASE EVENT DATE: 20150721
